FAERS Safety Report 6038489-7 (Version None)
Quarter: 2009Q1

REPORT INFORMATION
  Report Type: 
  Country: None (occurrence: None)
  Receive Date: 20090115
  Receipt Date: 20080521
  Transmission Date: 20090719
  Serious: No
  Sender: FDA-Public Use
  Company Number: US-KINGPHARMUSA00001-K200800593

PATIENT
  Sex: Female
  Weight: 58.957 kg

DRUGS (3)
  1. EPIPEN [Suspect]
     Dosage: .3 MG, SINGLE
     Dates: start: 20080521, end: 20080521
  2. ALLEGRA                            /01314201/ [Concomitant]
     Indication: HYPERSENSITIVITY
  3. VERAMYST [Concomitant]
     Indication: ASTHMA
     Dosage: UNK, UNK

REACTIONS (9)
  - ACCIDENTAL EXPOSURE [None]
  - EXPIRED DRUG ADMINISTERED [None]
  - HYPOAESTHESIA [None]
  - INJECTION SITE HAEMATOMA [None]
  - INJECTION SITE PAIN [None]
  - INJECTION SITE PALLOR [None]
  - INJECTION SITE SWELLING [None]
  - PARAESTHESIA [None]
  - VASOCONSTRICTION [None]
